FAERS Safety Report 16058009 (Version 3)
Quarter: 2019Q2

REPORT INFORMATION
  Report Type: Spontaneous
  Country: DE (occurrence: DE)
  Receive Date: 20190311
  Receipt Date: 20190510
  Transmission Date: 20190711
  Serious: Yes (Death, Hospitalization, Other)
  Sender: FDA-Public Use
  Company Number: PHHY2019DE051724

PATIENT
  Age: 79 Year
  Sex: Female

DRUGS (18)
  1. VALSARTAN 1 A PHARMA [Suspect]
     Active Substance: VALSARTAN
     Indication: HYPERTENSION
     Dosage: 320 MG, QD
     Route: 065
     Dates: start: 201308, end: 201807
  2. VALSARTAN HEXAL [Suspect]
     Active Substance: VALSARTAN
     Dosage: 320 MG, QD
     Route: 065
     Dates: start: 201403
  3. VALSARTAN MYLAN [Suspect]
     Active Substance: VALSARTAN
     Indication: HYPERTENSION
     Dosage: 320 MG, QD
     Route: 065
     Dates: start: 201308, end: 201807
  4. VALSARTAN 1 A PHARMA [Suspect]
     Active Substance: VALSARTAN
     Dosage: UNK UNK, QD (320 OR 160 MG, BID)
     Route: 065
     Dates: start: 201708
  5. VALSARTAN. [Concomitant]
     Active Substance: VALSARTAN
     Indication: PRODUCT USED FOR UNKNOWN INDICATION
     Dosage: UNK (1-0-1 AT HOSPITAL DISCHARGE)
     Route: 065
  6. AMLODIPIN [Concomitant]
     Active Substance: AMLODIPINE BESYLATE
     Indication: PRODUCT USED FOR UNKNOWN INDICATION
     Dosage: UNK 1-0-1 (AT HOSPITAL DISCHARGE)
     Route: 065
  7. VALSARTAN HEXAL [Suspect]
     Active Substance: VALSARTAN
     Indication: HYPERTENSION
     Dosage: 320 MG, QD
     Route: 065
     Dates: start: 201308, end: 201807
  8. VALSARTAN HEXAL [Suspect]
     Active Substance: VALSARTAN
     Dosage: 320 MG, QD
     Route: 065
     Dates: start: 201402
  9. VALSARTAN MYLAN [Suspect]
     Active Substance: VALSARTAN
     Dosage: 320 MG, QD
     Route: 065
     Dates: start: 201702, end: 201807
  10. DEXAMETHASON [Concomitant]
     Active Substance: DEXAMETHASONE
     Indication: PRODUCT USED FOR UNKNOWN INDICATION
     Dosage: UNK 1-1-1 (AT HOSPITAL DISCHARGE)
     Route: 065
  11. L-THYROXIN [Concomitant]
     Active Substance: LEVOTHYROXINE SODIUM
     Indication: PRODUCT USED FOR UNKNOWN INDICATION
     Dosage: UNK 1-0-0 (AT HOSPITAL DISCHARGE)
     Route: 065
  12. HCT [Concomitant]
     Active Substance: HYDROCHLOROTHIAZIDE
     Indication: PRODUCT USED FOR UNKNOWN INDICATION
     Dosage: UNK 1/2-0-0 (AT HOSPITAL DISCHARGE)
     Route: 065
  13. VALSARTAN 1 A PHARMA [Suspect]
     Active Substance: VALSARTAN
     Dosage: UNK UNK, QD (320 OR 160 MG BID)
     Route: 065
     Dates: start: 201312
  14. VALSARTAN HEXAL [Suspect]
     Active Substance: VALSARTAN
     Dosage: 320 MG, QD
     Route: 065
     Dates: start: 201310
  15. VALSARTAN HEXAL [Suspect]
     Active Substance: VALSARTAN
     Dosage: 320 MG, QD
     Route: 065
     Dates: start: 201403
  16. ACTRAPID [Concomitant]
     Active Substance: INSULIN HUMAN
     Indication: PRODUCT USED FOR UNKNOWN INDICATION
     Dosage: UNK
     Route: 065
  17. PANTOZOL [Concomitant]
     Active Substance: PANTOPRAZOLE SODIUM
     Indication: PRODUCT USED FOR UNKNOWN INDICATION
     Dosage: UNK 1-0-0 (AT HOSPITAL DISCHARGE)
     Route: 065
  18. BISOPROLOL [Concomitant]
     Active Substance: BISOPROLOL
     Indication: PRODUCT USED FOR UNKNOWN INDICATION
     Dosage: UNK 1/2-0-0 AT HOSPITAL DISCHARGE
     Route: 065

REACTIONS (13)
  - Postoperative renal failure [Unknown]
  - Hypertension [Unknown]
  - Metastases to lung [Unknown]
  - Metastases to central nervous system [Unknown]
  - Renal cyst [Unknown]
  - Aortic dilatation [Unknown]
  - Hypoaesthesia [Unknown]
  - Death [Fatal]
  - Renal cell carcinoma [Not Recovered/Not Resolved]
  - Blood glucose abnormal [Unknown]
  - Loss of personal independence in daily activities [Unknown]
  - Brain oedema [Unknown]
  - Cholelithiasis [Unknown]

NARRATIVE: CASE EVENT DATE: 2018
